FAERS Safety Report 7830517-9 (Version None)
Quarter: 2011Q4

REPORT INFORMATION
  Report Type: 
  Country: None (occurrence: None)
  Receive Date: 20111021
  Receipt Date: 20111007
  Transmission Date: 20120403
  Serious: Yes (Other)
  Sender: FDA-Public Use
  Company Number: US-UCBSA-043120

PATIENT
  Sex: Female

DRUGS (4)
  1. ZYRTEC [Suspect]
  2. SINGULAIR [Concomitant]
  3. XYZAL [Suspect]
  4. XYZAL [Suspect]
     Indication: HYPERSENSITIVITY
     Dosage: TAPERING DOSE

REACTIONS (2)
  - ASTHMA [None]
  - DRUG INEFFECTIVE [None]
